FAERS Safety Report 4300174-7 (Version None)
Quarter: 2004Q1

REPORT INFORMATION
  Report Type: 
  Country: None (occurrence: None)
  Receive Date: 20040220
  Receipt Date: 20040121
  Transmission Date: 20041129
  Serious: Yes (Life-Threatening, Hospitalization)
  Sender: FDA-Public Use
  Company Number: PHRM2004FR00610

PATIENT
  Age: 52 Year
  Sex: Male

DRUGS (3)
  1. MELLERIL [Suspect]
     Indication: DEPRESSION
     Dosage: 15 DRP, TID
     Route: 048
     Dates: start: 20040113, end: 20040115
  2. HALDOL [Concomitant]
  3. IMOVANE [Concomitant]

REACTIONS (5)
  - AGRANULOCYTOSIS [None]
  - ANAEMIA [None]
  - FEBRILE BONE MARROW APLASIA [None]
  - PNEUMONIA PNEUMOCOCCAL [None]
  - PNEUMONIA STAPHYLOCOCCAL [None]
